FAERS Safety Report 8044093-1 (Version None)
Quarter: 2012Q1

REPORT INFORMATION
  Report Type: 
  Country: None (occurrence: None)
  Receive Date: 20120113
  Receipt Date: 20120106
  Transmission Date: 20120608
  Serious: Yes (Disabling)
  Sender: FDA-Public Use
  Company Number: US-US-EMD SERONO, INC.-7105459

PATIENT
  Sex: Female

DRUGS (1)
  1. REBIF [Suspect]
     Indication: MULTIPLE SCLEROSIS
     Route: 058
     Dates: start: 20101203

REACTIONS (4)
  - RETINAL DETACHMENT [None]
  - DEPRESSED MOOD [None]
  - IMPAIRED DRIVING ABILITY [None]
  - BLINDNESS [None]
